FAERS Safety Report 7878984-9 (Version None)
Quarter: 2011Q4

REPORT INFORMATION
  Report Type: 
  Country: None (occurrence: None)
  Receive Date: 20111101
  Receipt Date: 20111021
  Transmission Date: 20120403
  Serious: Yes (Hospitalization)
  Sender: FDA-Public Use
  Company Number: PHFR2011GB06070

PATIENT
  Sex: Male

DRUGS (1)
  1. CLOZARIL [Suspect]
     Indication: SCHIZOPHRENIA
     Route: 048
     Dates: start: 20111006

REACTIONS (6)
  - TREMOR [None]
  - INFECTION [None]
  - INCOHERENT [None]
  - URINARY TRACT INFECTION [None]
  - HYPERTENSION [None]
  - BODY TEMPERATURE INCREASED [None]
